FAERS Safety Report 23575478 (Version 1)
Quarter: 2024Q1

REPORT INFORMATION
  Report Type: Spontaneous
  Country: CA (occurrence: CA)
  Receive Date: 20240228
  Receipt Date: 20240228
  Transmission Date: 20240410
  Serious: Yes (Other)
  Sender: FDA-Public Use
  Company Number: CA-ANIPHARMA-2020-CA-001528

PATIENT
  Age: 64 Year
  Sex: Female

DRUGS (4)
  1. CANDESARTAN CILEXETIL [Suspect]
     Active Substance: CANDESARTAN CILEXETIL
     Indication: Migraine
     Dosage: 4 MG UNK / UNK
     Route: 048
     Dates: start: 20190503
  2. AIMOVIG [Suspect]
     Active Substance: ERENUMAB-AOOE
     Dosage: UNK / 70 MG MONTH
     Route: 048
     Dates: start: 20190801
  3. AMITRIPTYLINE [Concomitant]
     Active Substance: AMITRIPTYLINE
     Route: 065
  4. TOPIRAMATE [Suspect]
     Active Substance: TOPIRAMATE
     Route: 065
     Dates: start: 20190503

REACTIONS (8)
  - Hypotension [Unknown]
  - Product use in unapproved indication [Recovered/Resolved]
  - Drug ineffective for unapproved indication [Unknown]
  - Nephrolithiasis [Unknown]
  - Tinnitus [Unknown]
  - Drug intolerance [Unknown]
  - Injection site pain [Unknown]
  - Contraindicated product administered [Unknown]

NARRATIVE: CASE EVENT DATE: 20190503
